FAERS Safety Report 21655084 (Version 5)
Quarter: 2024Q2

REPORT INFORMATION
  Report Type: Spontaneous
  Country: US (occurrence: US)
  Receive Date: 20221129
  Receipt Date: 20240516
  Transmission Date: 20240716
  Serious: No
  Sender: FDA-Public Use
  Company Number: US-PFIZER INC-202201322343

PATIENT
  Age: 7 Year
  Sex: Male
  Weight: 20.408 kg

DRUGS (6)
  1. GENOTROPIN [Suspect]
     Active Substance: SOMATROPIN
     Indication: Short stature
     Dosage: 12 MG
     Dates: start: 2020
  2. GENOTROPIN [Suspect]
     Active Substance: SOMATROPIN
     Indication: Hypopituitarism
     Dosage: UNK, ALTERNATE DAY (0.8 AND 1.0 ALTERNATING DOSE FOR 6 DAYS A WEEK.(0.22MG/KG/WEEK)
  3. GENOTROPIN [Suspect]
     Active Substance: SOMATROPIN
     Indication: Growth hormone deficiency
     Dosage: UNK, ALTERNATE DAY (0.8 AND 1.0 ALTERNATING DOSE FOR 6 DAYS A WEEK.(0.22MG/KG/WEEK)
  4. GENOTROPIN [Suspect]
     Active Substance: SOMATROPIN
     Indication: Hypopituitarism
     Dosage: DAILY DOSE 1 MG/DAY 6 DAYS/WEEK
  5. GENOTROPIN [Suspect]
     Active Substance: SOMATROPIN
     Dosage: GENOTROPIN 12 MG SOLUTION RECONSTITUTED 1 MG SIX DAYS A WEEK SUBCUTANEOUS/1 MG SIX DAYS A WEEK, SUBC
     Route: 058
  6. GENOTROPIN [Suspect]
     Active Substance: SOMATROPIN
     Dosage: GENOTROPIN 0.9 MG SIX DAYS A WEEK (0.8 MG ALTERNATING WITH 1 MG)

REACTIONS (4)
  - Prescription drug used without a prescription [Unknown]
  - Expired device used [Unknown]
  - Device breakage [Unknown]
  - Device information output issue [Unknown]
